FAERS Safety Report 17872398 (Version 1)
Quarter: 2020Q2

REPORT INFORMATION
  Report Type: Other
  Country: LK (occurrence: LK)
  Receive Date: 20200608
  Receipt Date: 20200608
  Transmission Date: 20200714
  Serious: Yes (Other)
  Sender: FDA-Public Use
  Company Number: LK-GENUS_LIFESCIENCES-USA-POI0580202000208

PATIENT
  Age: 47 Year
  Sex: Male

DRUGS (4)
  1. CLOPIDOGREL [Suspect]
     Active Substance: CLOPIDOGREL BISULFATE
     Dosage: HS
     Dates: start: 2020
  2. YOSPRALA [Suspect]
     Active Substance: ASPIRIN\OMEPRAZOLE
     Indication: CORONARY ANGIOPLASTY
     Dosage: HS
     Dates: start: 2020, end: 2020
  3. YOSPRALA [Suspect]
     Active Substance: ASPIRIN\OMEPRAZOLE
     Dosage: HS
     Dates: start: 2020
  4. CLOPIDOGREL [Suspect]
     Active Substance: CLOPIDOGREL BISULFATE
     Indication: CORONARY ANGIOPLASTY
     Dosage: HS
     Dates: start: 2020, end: 2020

REACTIONS (2)
  - Dengue haemorrhagic fever [Recovered/Resolved]
  - Drug interaction [Recovered/Resolved]

NARRATIVE: CASE EVENT DATE: 2020
